FAERS Safety Report 9214696 (Version 1)
Quarter: 2013Q2

REPORT INFORMATION
  Report Type: Report from Study
  Country: US (occurrence: US)
  Receive Date: 20130405
  Receipt Date: 20130405
  Transmission Date: 20140414
  Serious: Yes (Death)
  Sender: FDA-Public Use
  Company Number: US-ROCHE-1210761

PATIENT
  Age: 71 Year
  Sex: Male

DRUGS (1)
  1. XELODA [Suspect]
     Indication: COLORECTAL CANCER METASTATIC
     Route: 048
     Dates: start: 20130126

REACTIONS (6)
  - Disease progression [Fatal]
  - Asthenia [Fatal]
  - Hypophagia [Fatal]
  - Mobility decreased [Fatal]
  - Abdominal pain [Fatal]
  - Back pain [Fatal]
